FAERS Safety Report 9260175 (Version 7)
Quarter: 2014Q1

REPORT INFORMATION
  Report Type: Spontaneous
  Country: US (occurrence: US)
  Receive Date: 20130429
  Receipt Date: 20140116
  Transmission Date: 20141002
  Serious: Yes (Death)
  Sender: FDA-Public Use
  Company Number: US-PFIZER INC-2013131836

PATIENT
  Age: 48 Year
  Sex: Male
  Weight: 65.76 kg

DRUGS (7)
  1. CORTISONE [Suspect]
     Dosage: UNK
  2. NEURONTIN [Suspect]
     Indication: PAIN IN EXTREMITY
     Dosage: 75 MG, 3X/DAY
     Dates: start: 201304, end: 201304
  3. LYRICA [Suspect]
     Indication: SCIATICA
     Dosage: 75 MG, 3X/DAY
     Dates: start: 20130424, end: 201305
  4. LYRICA [Suspect]
     Indication: LUMBAR RADICULOPATHY
  5. PRAVASTATIN SODIUM [Suspect]
     Indication: BLOOD CHOLESTEROL INCREASED
     Dosage: 20 MG/DAY
  6. TENORMIN [Concomitant]
     Indication: HYPERTENSION
     Dosage: 50 MG, 1X/DAY
  7. LISINOPRIL [Concomitant]
     Indication: HYPERTENSION
     Dosage: UNK, 1X/DAY

REACTIONS (7)
  - Cerebrovascular accident [Fatal]
  - Drug ineffective [Unknown]
  - Intervertebral disc protrusion [Unknown]
  - Pain in extremity [Unknown]
  - Back disorder [Unknown]
  - Limb discomfort [Unknown]
  - Gait disturbance [Unknown]
